FAERS Safety Report 21097991 (Version 4)
Quarter: 2022Q4

REPORT INFORMATION
  Report Type: Report from Study
  Country: FR (occurrence: FR)
  Receive Date: 20220719
  Receipt Date: 20221117
  Transmission Date: 20230113
  Serious: Yes (Hospitalization, Other)
  Sender: FDA-Public Use
  Company Number: FR-BRISTOL-MYERS SQUIBB COMPANY-2022-074655

PATIENT
  Age: 67 Year
  Sex: Male
  Weight: 73 kg

DRUGS (14)
  1. LENALIDOMIDE [Suspect]
     Active Substance: LENALIDOMIDE
     Indication: Plasma cell myeloma
     Route: 048
     Dates: start: 20211102, end: 20220312
  2. TECLISTAMAB [Suspect]
     Active Substance: TECLISTAMAB
     Indication: Plasma cell myeloma
     Route: 058
     Dates: start: 20211005, end: 20220607
  3. TECLISTAMAB [Suspect]
     Active Substance: TECLISTAMAB
     Route: 058
  4. DARATUMUMAB [Suspect]
     Active Substance: DARATUMUMAB
     Indication: Plasma cell myeloma
     Route: 058
     Dates: start: 20211004, end: 20220523
  5. DARATUMUMAB [Suspect]
     Active Substance: DARATUMUMAB
     Route: 058
  6. LEUCOVORIN CALCIUM [Concomitant]
     Active Substance: LEUCOVORIN CALCIUM
     Indication: Prophylaxis
     Dosage: 1 IN 1 D
     Route: 048
     Dates: start: 20211006
  7. LEUCOVORIN CALCIUM [Concomitant]
     Active Substance: LEUCOVORIN CALCIUM
     Dosage: 1 IN 1 D
     Route: 048
  8. BACTRIM [Concomitant]
     Active Substance: SULFAMETHOXAZOLE\TRIMETHOPRIM
     Indication: Infection prophylaxis
     Dosage: 800/600
     Route: 048
     Dates: start: 20211006
  9. KARDEGIC [Concomitant]
     Active Substance: ASPIRIN DL-LYSINE
     Indication: Thrombosis prophylaxis
     Dosage: 1 IN 1 D
     Route: 048
     Dates: start: 20211102
  10. COVERAM [Concomitant]
     Active Substance: AMLODIPINE\PERINDOPRIL
     Indication: Prophylaxis
     Dosage: 10/10
     Route: 048
     Dates: start: 20210607
  11. VALACYCLOVIR HYDROCHLORIDE [Concomitant]
     Active Substance: VALACYCLOVIR HYDROCHLORIDE
     Indication: Antiviral prophylaxis
     Dosage: 1 IN 0.5 D
     Route: 048
     Dates: start: 20211006
  12. OFLOXACIN [Concomitant]
     Active Substance: OFLOXACIN
     Indication: Infection prophylaxis
     Dosage: 1 IN 1 TOTAL
     Route: 065
     Dates: start: 20220613, end: 20220613
  13. ACETYLCYSTEINE [Concomitant]
     Active Substance: ACETYLCYSTEINE
     Indication: Upper respiratory tract infection
     Dosage: 1 IN 1 D
     Route: 048
     Dates: start: 20211125
  14. ELIQUIS [Concomitant]
     Active Substance: APIXABAN
     Indication: Venous thrombosis limb
     Dosage: 1 IN 0.5 D
     Route: 048
     Dates: start: 20220314

REACTIONS (1)
  - Prostate cancer [Not Recovered/Not Resolved]

NARRATIVE: CASE EVENT DATE: 20220613
